FAERS Safety Report 12736749 (Version 1)
Quarter: 2016Q3

REPORT INFORMATION
  Report Type: Spontaneous
  Country: SE (occurrence: SE)
  Receive Date: 20160912
  Receipt Date: 20160912
  Transmission Date: 20161109
  Serious: Yes (Other)
  Sender: FDA-Public Use
  Company Number: SE-MEDA-2016090011

PATIENT
  Age: 69 Year
  Sex: Male

DRUGS (6)
  1. PYRIDOXIN [Concomitant]
     Active Substance: PYRIDOXINE
  2. NEBIDO [Concomitant]
     Active Substance: TESTOSTERONE UNDECANOATE
  3. BONDIL 500 MCG URETRALSTIFT [Suspect]
     Active Substance: ALPROSTADIL
     Indication: ERECTILE DYSFUNCTION
     Route: 066
     Dates: start: 201508
  4. SELOKEN [Concomitant]
     Active Substance: METOPROLOL
  5. INSULIN [Concomitant]
     Active Substance: INSULIN NOS
  6. ALFUZOSIN [Concomitant]
     Active Substance: ALFUZOSIN

REACTIONS (1)
  - Cerebrovascular accident [Unknown]

NARRATIVE: CASE EVENT DATE: 20160827
